FAERS Safety Report 12988997 (Version 1)
Quarter: 2016Q4

REPORT INFORMATION
  Report Type: Spontaneous
  Country: PL (occurrence: PL)
  Receive Date: 20161201
  Receipt Date: 20161201
  Transmission Date: 20170207
  Serious: Yes (Death, Other)
  Sender: FDA-Public Use
  Company Number: PL-ROCHE-1860769

PATIENT
  Age: 77 Year
  Sex: Female

DRUGS (5)
  1. VINCRISTINE [Suspect]
     Active Substance: VINCRISTINE
     Indication: RICHTER^S SYNDROME
     Route: 065
     Dates: start: 20160414
  2. CYCLOPHOSPHAMIDE. [Suspect]
     Active Substance: CYCLOPHOSPHAMIDE
     Indication: RICHTER^S SYNDROME
     Route: 065
     Dates: start: 20160414
  3. MABTHERA [Suspect]
     Active Substance: RITUXIMAB
     Indication: RICHTER^S SYNDROME
     Route: 065
     Dates: start: 20160414
  4. PREDNISOLONE. [Suspect]
     Active Substance: PREDNISOLONE
     Indication: RICHTER^S SYNDROME
     Route: 065
     Dates: start: 20160414
  5. SELINEXOR [Suspect]
     Active Substance: SELINEXOR
     Indication: RICHTER^S SYNDROME
     Route: 065
     Dates: start: 20160620

REACTIONS (8)
  - Neutropenia [Unknown]
  - Haemoglobin decreased [Unknown]
  - Hyponatraemia [Unknown]
  - Multiple organ dysfunction syndrome [Unknown]
  - Death [Fatal]
  - Asthenia [Unknown]
  - Thrombocytopenia [Unknown]
  - Metastatic neoplasm [Unknown]
